FAERS Safety Report 10551617 (Version 3)
Quarter: 2014Q4

REPORT INFORMATION
  Report Type: Report from Study
  Country: DE (occurrence: DE)
  Receive Date: 20141029
  Receipt Date: 20141124
  Transmission Date: 20150529
  Serious: Yes (Other)
  Sender: FDA-Public Use
  Company Number: DE-B.I. PHARMACEUTICALS,INC./RIDGEFIELD-2013-BI-01342II

PATIENT
  Age: 65 Year
  Sex: Male
  Weight: 77.7 kg

DRUGS (10)
  1. BIBF 1120 [Suspect]
     Active Substance: NINTEDANIB
     Indication: COLORECTAL CANCER METASTATIC
     Dosage: 400 MG
     Route: 048
     Dates: start: 20120925
  2. ZOFRAN [Concomitant]
     Active Substance: ONDANSETRON HYDROCHLORIDE
     Indication: NAUSEA
     Dosage: 16 MG
     Route: 048
     Dates: start: 20120927
  3. PANTOZOL [Concomitant]
     Active Substance: PANTOPRAZOLE SODIUM
     Indication: PROPHYLAXIS
     Dosage: 20 MG
     Route: 048
     Dates: start: 20130129
  4. BIBF 1120 [Suspect]
     Active Substance: NINTEDANIB
     Dosage: 400 MG
     Route: 048
     Dates: start: 20121218, end: 20121228
  5. IMODIUM [Concomitant]
     Active Substance: LOPERAMIDE HYDROCHLORIDE
     Indication: DIARRHOEA
     Route: 048
     Dates: start: 20121009
  6. AMLOPIDIN [Concomitant]
     Indication: HYPERTENSION
     Dosage: 5 MG
     Route: 048
  7. MCP AL [Concomitant]
     Indication: NAUSEA
     Dosage: 90 ANZ
     Route: 048
     Dates: start: 20120927
  8. ONDANSETRON [Concomitant]
     Active Substance: ONDANSETRON
     Indication: NAUSEA
     Dosage: 8 MG
     Route: 048
     Dates: start: 20121120
  9. TAVANIC [Concomitant]
     Active Substance: LEVOFLOXACIN
     Indication: PROPHYLAXIS
     Dosage: 500 MG
     Route: 048
     Dates: start: 20121228, end: 20130107
  10. DECORTIN H [Concomitant]
     Active Substance: PREDNISOLONE
     Indication: PROPHYLAXIS
     Dosage: 50 MG
     Route: 048
     Dates: start: 20130111

REACTIONS (2)
  - Carbon monoxide diffusing capacity decreased [Not Recovered/Not Resolved]
  - Pneumonitis [Not Recovered/Not Resolved]

NARRATIVE: CASE EVENT DATE: 20130104
